FAERS Safety Report 20363403 (Version 1)
Quarter: 2022Q1

REPORT INFORMATION
  Report Type: Spontaneous
  Country: US (occurrence: None)
  Receive Date: 20220121
  Receipt Date: 20220121
  Transmission Date: 20220424
  Serious: No
  Sender: FDA-Public Use
  Company Number: 2022A017879

PATIENT
  Age: 48 Year
  Sex: Female
  Weight: 76.7 kg

DRUGS (1)
  1. TUDORZA PRESSAIR [Suspect]
     Active Substance: ACLIDINIUM BROMIDE
     Indication: Chronic obstructive pulmonary disease
     Dosage: 400 MCG 1 PUFF DAILY
     Route: 055
     Dates: start: 20211224

REACTIONS (7)
  - COVID-19 [Unknown]
  - Eye disorder [Unknown]
  - Malaise [Unknown]
  - Product dose omission issue [Not Recovered/Not Resolved]
  - Off label use [Not Recovered/Not Resolved]
  - Drug ineffective [Recovering/Resolving]
  - Complication associated with device [Not Recovered/Not Resolved]

NARRATIVE: CASE EVENT DATE: 20211224
